FAERS Safety Report 21119034 (Version 1)
Quarter: 2022Q3

REPORT INFORMATION
  Report Type: Spontaneous
  Country: US (occurrence: None)
  Receive Date: 20220721
  Receipt Date: 20220721
  Transmission Date: 20221026
  Serious: Yes (Death)
  Sender: FDA-Public Use
  Company Number: None

PATIENT
  Age: 35 Year
  Sex: Male
  Weight: 129 kg

DRUGS (2)
  1. BARICITINIB [Suspect]
     Active Substance: BARICITINIB
     Indication: COVID-19
     Dosage: 4 MG EVERY DAY PO?
     Route: 048
     Dates: start: 20211212, end: 20211217
  2. REMDESIVIR [Suspect]
     Active Substance: REMDESIVIR
     Indication: COVID-19
     Dosage: 200 MG ONCE IV
     Route: 042
     Dates: start: 20211213, end: 20211216

REACTIONS (4)
  - Septic shock [None]
  - Disease progression [None]
  - Pneumonia bacterial [None]
  - Therapy cessation [None]

NARRATIVE: CASE EVENT DATE: 20211217
